FAERS Safety Report 17658059 (Version 1)
Quarter: 2020Q2

REPORT INFORMATION
  Report Type: Spontaneous
  Country: US (occurrence: US)
  Receive Date: 20200411
  Receipt Date: 20200411
  Transmission Date: 20200713
  Serious: Yes (Other)
  Sender: FDA-Public Use
  Company Number: US-AMGEN-USASP2020060225

PATIENT
  Sex: Female

DRUGS (1)
  1. PROLIA [Suspect]
     Active Substance: DENOSUMAB
     Indication: OSTEOPOROSIS POSTMENOPAUSAL
     Dosage: UNK UNK, Q6MO
     Route: 065

REACTIONS (5)
  - Blood calcium increased [Unknown]
  - Pulmonary embolism [Unknown]
  - Bone density decreased [Unknown]
  - Depression [Unknown]
  - Breast cancer [Unknown]

NARRATIVE: CASE EVENT DATE: 20191101
